FAERS Safety Report 13259438 (Version 2)
Quarter: 2017Q2

REPORT INFORMATION
  Report Type: Spontaneous
  Country: US (occurrence: US)
  Receive Date: 20170222
  Receipt Date: 20170509
  Transmission Date: 20170830
  Serious: No
  Sender: FDA-Public Use
  Company Number: US-PFIZER INC-2017077615

PATIENT
  Age: 70 Year
  Sex: Male

DRUGS (6)
  1. LYRICA [Suspect]
     Active Substance: PREGABALIN
     Indication: LUMBAR RADICULOPATHY
     Dosage: 50 MG, 1X/DAY, (50 MG QHS)
     Route: 048
     Dates: start: 201605
  2. GABAPENTIN. [Suspect]
     Active Substance: GABAPENTIN
     Dosage: 50 MG, 1X/DAY, (QHS )
  3. GABAPENTIN. [Suspect]
     Active Substance: GABAPENTIN
     Dosage: 25 MG, UNK
  4. GABAPENTIN. [Suspect]
     Active Substance: GABAPENTIN
     Dosage: 25 MG, 2X/DAY
  5. GABAPENTIN. [Suspect]
     Active Substance: GABAPENTIN
     Dosage: 150 MG, 2X/DAY
  6. LYRICA [Suspect]
     Active Substance: PREGABALIN
     Dosage: 25 MG, 1X/DA, (25 MG QHS)

REACTIONS (4)
  - Pain [Recovering/Resolving]
  - Enuresis [Recovering/Resolving]
  - Swelling [Recovering/Resolving]
  - Condition aggravated [Recovering/Resolving]
